FAERS Safety Report 15232639 (Version 3)
Quarter: 2022Q1

REPORT INFORMATION
  Report Type: Spontaneous
  Country: CH (occurrence: CH)
  Receive Date: 20180802
  Receipt Date: 20220131
  Transmission Date: 20220423
  Serious: Yes (Death)
  Sender: FDA-Public Use
  Company Number: CH-SM-2018-10991

PATIENT
  Age: 57 Year
  Sex: Male

DRUGS (13)
  1. DULOXETINE HYDROCHLORIDE [Suspect]
     Active Substance: DULOXETINE HYDROCHLORIDE
     Indication: Depression
     Dosage: 60 MILLIGRAM DAILY;
     Route: 048
     Dates: start: 20180101, end: 20180716
  2. DULOXETINE HYDROCHLORIDE [Suspect]
     Active Substance: DULOXETINE HYDROCHLORIDE
     Dosage: 30 MILLIGRAM DAILY;
     Route: 048
     Dates: start: 20180101, end: 20180716
  3. EDOXABAN TOSYLATE [Suspect]
     Active Substance: EDOXABAN TOSYLATE
     Indication: Atrial fibrillation
     Dosage: 60 MILLIGRAM DAILY;
     Route: 048
     Dates: start: 20160818, end: 20180716
  4. Concor 10 mg coated tablets [Concomitant]
     Indication: Hypertension
     Dosage: 10 MILLIGRAM DAILY;
     Route: 048
     Dates: start: 20160818, end: 20180716
  5. Co-diovan 160/25 mg film-coated tablets [Concomitant]
     Indication: Hypertension
     Dosage: CO-DIOVAN 160/25 MG FILM-COATED TABLETS, LONG-TERM MEDICATION
     Route: 048
     Dates: end: 20180716
  6. Inegy 10/20 mg tablets [Concomitant]
     Indication: Acquired mixed hyperlipidaemia
     Dosage: INEGY 10/20 MG TABLETS, LONG-TERM MEDICATION
     Route: 048
     Dates: end: 20180716
  7. Metformin-Mepha Lactab 850 mg tablets [Concomitant]
     Indication: Diabetes mellitus
     Dosage: 850 MILLIGRAM DAILY;
     Dates: end: 20180716
  8. Tirosint 125 mcg soft capsules [Concomitant]
     Dosage: 125 MICROGRAM DAILY;
     Route: 048
     Dates: start: 20180101, end: 20180716
  9. Eltroxin LF 0.05 mg tablets [Concomitant]
     Dosage: .05 MILLIGRAM DAILY;
  10. Condrosulf 800 mg tablets [Concomitant]
     Indication: Osteoarthritis
     Dosage: 800 MILLIGRAM DAILY; LONG-TERM MEDICATION
     Dates: end: 20180716
  11. MOVICOL [Concomitant]
     Active Substance: POLYETHYLENE GLYCOL 3350\POTASSIUM CHLORIDE\SODIUM BICARBONATE\SODIUM CHLORIDE
     Dosage: 1 DOSAGE FORMS DAILY;
  12. Torasemide 200 [Concomitant]
     Indication: Oedema peripheral
     Dosage: AS NECESSARY
     Route: 048
  13. AMLODIPINE BESYLATE [Concomitant]
     Active Substance: AMLODIPINE BESYLATE
     Indication: Hypertension
     Dosage: AS NECESSARY
     Route: 048

REACTIONS (2)
  - Haemorrhage intracranial [Fatal]
  - Accidental death [Fatal]

NARRATIVE: CASE EVENT DATE: 20180716
